FAERS Safety Report 5139584-7 (Version None)
Quarter: 2006Q4

REPORT INFORMATION
  Report Type: 
  Country: None (occurrence: None)
  Receive Date: 20061024
  Receipt Date: 20061017
  Transmission Date: 20070319
  Serious: No
  Sender: FDA-Public Use
  Company Number: 2006-149213-NL

PATIENT
  Age: 68 Year
  Sex: Female

DRUGS (3)
  1. DANAPAROID SODIUM [Suspect]
     Indication: HEPARIN-INDUCED THROMBOCYTOPENIA
     Dosage: 2500 + 400 + 300 + 150 ANTI_XA ONCE INTRAVENOUS (NOS) - SEE IMAGE
  2. DANAPAROID SODIUM [Suspect]
     Indication: HEPARIN-INDUCED THROMBOCYTOPENIA
     Dosage: 2500 + 400 + 300 + 150 ANTI_XA ONCE INTRAVENOUS (NOS) - SEE IMAGE
  3. HEPARIN [Concomitant]

REACTIONS (3)
  - ARTERIAL THROMBOSIS [None]
  - CEREBROVASCULAR ACCIDENT [None]
  - VENOUS THROMBOSIS [None]
